FAERS Safety Report 7948313-0 (Version None)
Quarter: 2011Q4

REPORT INFORMATION
  Report Type: 
  Country: None (occurrence: None)
  Receive Date: 20111123
  Receipt Date: 20111107
  Transmission Date: 20120403
  Serious: Yes (Other)
  Sender: FDA-Public Use
  Company Number: 2011P1010646

PATIENT
  Age: 15 Year
  Sex: Male

DRUGS (7)
  1. PEPCID [Suspect]
     Indication: COLITIS ULCERATIVE
     Dates: start: 20110818
  2. ENEMA [Concomitant]
  3. PROGRAF [Suspect]
     Indication: COLITIS ULCERATIVE
  4. MIYA BM (CLOSTRIDIUM BUTYRICUM) [Concomitant]
  5. SULFAMETHOXAZOLE AND TRIMETHOPRIM [Suspect]
     Dosage: PO
     Route: 048
     Dates: start: 20110909
  6. PENTASA [Concomitant]
  7. IMURAN [Suspect]
     Dosage: PO
     Route: 048

REACTIONS (2)
  - NEUTROPHIL COUNT DECREASED [None]
  - RESTING TREMOR [None]
